FAERS Safety Report 8361145-7 (Version None)
Quarter: 2012Q2

REPORT INFORMATION
  Report Type: 
  Country: None (occurrence: None)
  Receive Date: 20120515
  Receipt Date: 20120430
  Transmission Date: 20120825
  Serious: Yes (Hospitalization)
  Sender: FDA-Public Use
  Company Number: ES-WATSON-2012-07545

PATIENT
  Age: 78 Year
  Sex: Male

DRUGS (2)
  1. ACYCLOVIR [Suspect]
     Indication: PAIN
     Dosage: 400 MG Q8H
     Route: 048
  2. ACYCLOVIR [Suspect]
     Indication: SKIN LESION

REACTIONS (4)
  - OVERDOSE [None]
  - APHASIA [None]
  - ATAXIA [None]
  - HALLUCINATION, VISUAL [None]
